FAERS Safety Report 20816108 (Version 1)
Quarter: 2022Q2

REPORT INFORMATION
  Report Type: Spontaneous
  Country: US (occurrence: US)
  Receive Date: 20220511
  Receipt Date: 20220511
  Transmission Date: 20220720
  Serious: No
  Sender: FDA-Public Use
  Company Number: US-TAKEDA-2022TUS029758

PATIENT
  Age: 26 Year
  Sex: Male

DRUGS (2)
  1. MYDAYIS [Suspect]
     Active Substance: AMPHETAMINE ASPARTATE\AMPHETAMINE SULFATE\DEXTROAMPHETAMINE SACCHARATE\DEXTROAMPHETAMINE SULFATE
     Indication: Attention deficit hyperactivity disorder
     Dosage: 125 MILLIGRAM
     Route: 065
  2. LAMICTAL [Concomitant]
     Active Substance: LAMOTRIGINE
     Indication: Bipolar disorder
     Dosage: 100 MILLIGRAM, BID
     Route: 065

REACTIONS (5)
  - Muscle strain [Unknown]
  - Depressed mood [Unknown]
  - Disturbance in attention [Unknown]
  - Fatigue [Unknown]
  - Irritability [Unknown]
